FAERS Safety Report 26126245 (Version 1)
Quarter: 2025Q4

REPORT INFORMATION
  Report Type: Spontaneous
  Country: US (occurrence: None)
  Receive Date: 20251205
  Receipt Date: 20251205
  Transmission Date: 20260117
  Serious: Yes (Life-Threatening)
  Sender: FDA-CTU
  Company Number: None

PATIENT
  Age: 25 Year
  Sex: Female
  Weight: 61.7 kg

DRUGS (1)
  1. FERRLECIT [Suspect]
     Active Substance: SODIUM FERRIC GLUCONATE COMPLEX
     Indication: Iron deficiency
     Dosage: ONCE INTRAVENOUS ?
     Route: 042
     Dates: start: 20251203, end: 20251203

REACTIONS (12)
  - Flank pain [None]
  - Chest discomfort [None]
  - Paraesthesia [None]
  - Pruritus [None]
  - Pruritus [None]
  - Infusion related reaction [None]
  - Therapy interrupted [None]
  - Nausea [None]
  - Urticaria [None]
  - Peripheral swelling [None]
  - Tachycardia [None]
  - Hypotension [None]

NARRATIVE: CASE EVENT DATE: 20251203
